FAERS Safety Report 7489577-X (Version None)
Quarter: 2011Q2

REPORT INFORMATION
  Report Type: 
  Country: None (occurrence: None)
  Receive Date: 20110519
  Receipt Date: 20110511
  Transmission Date: 20111010
  Serious: Yes (Hospitalization)
  Sender: FDA-Public Use
  Company Number: US-BIOGENIDEC-2011BI017606

PATIENT
  Age: 64 Year
  Sex: Female

DRUGS (1)
  1. TYSABRI [Suspect]
     Indication: MULTIPLE SCLEROSIS
     Route: 042
     Dates: start: 20081017

REACTIONS (7)
  - CATHETER SITE SWELLING [None]
  - MENSTRUATION IRREGULAR [None]
  - VASCULAR COMPLICATION ASSOCIATED WITH DEVICE [None]
  - MUSCULAR WEAKNESS [None]
  - HEAD INJURY [None]
  - PAIN IN EXTREMITY [None]
  - FALL [None]
